FAERS Safety Report 7433233-0 (Version None)
Quarter: 2011Q2

REPORT INFORMATION
  Report Type: 
  Country: None (occurrence: None)
  Receive Date: 20110415
  Receipt Date: 20110404
  Transmission Date: 20111010
  Serious: Yes (Death)
  Sender: FDA-Public Use
  Company Number: 2011MA003643

PATIENT
  Age: 89 Year
  Sex: Female

DRUGS (16)
  1. RISPERIDONE [Suspect]
     Indication: PARKINSON'S DISEASE
     Dosage: PO
     Route: 048
  2. BISOPROLOL FUMARATE [Concomitant]
  3. FORTISIP [Concomitant]
  4. AMOXICILLIN [Concomitant]
  5. ASPIRIN [Concomitant]
  6. DIGOXIN [Concomitant]
  7. LACTULOSE [Concomitant]
  8. IRON [Concomitant]
  9. CARBIMAZOLE [Concomitant]
  10. SPARTEINE [Concomitant]
  11. ROPINIROLE [Suspect]
     Indication: PARKINSON'S DISEASE
     Dosage: 6 MG;QD;PO
     Route: 048
  12. FUROSEMIDE [Concomitant]
  13. SINEMET [Concomitant]
  14. CARBIDOPA [Concomitant]
  15. LEVODOPA [Concomitant]
  16. ROPINIROLE [Concomitant]

REACTIONS (2)
  - WRONG DRUG ADMINISTERED [None]
  - MEDICATION ERROR [None]
